FAERS Safety Report 12582546 (Version 2)
Quarter: 2016Q3

REPORT INFORMATION
  Report Type: Report from Study
  Country: IQ (occurrence: IQ)
  Receive Date: 20160722
  Receipt Date: 20160803
  Transmission Date: 20161109
  Serious: Yes (Hospitalization, Other)
  Sender: FDA-Public Use
  Company Number: PHHY2015IQ162134

PATIENT
  Sex: Male

DRUGS (1)
  1. GLIVEC [Suspect]
     Active Substance: IMATINIB MESYLATE
     Indication: CHRONIC MYELOID LEUKAEMIA
     Dosage: 400 MG, QD
     Route: 048
     Dates: start: 2007

REACTIONS (11)
  - Renal colic [Recovering/Resolving]
  - Urinary tract disorder [Not Recovered/Not Resolved]
  - Dysuria [Unknown]
  - Vomiting [Recovering/Resolving]
  - Pyrexia [Recovered/Resolved]
  - Vision blurred [Unknown]
  - Nephrolithiasis [Unknown]
  - Influenza [Recovered/Resolved]
  - Ocular hyperaemia [Unknown]
  - Hot flush [Not Recovered/Not Resolved]
  - Lacrimation increased [Not Recovered/Not Resolved]

NARRATIVE: CASE EVENT DATE: 20160714
